FAERS Safety Report 13039576 (Version 1)
Quarter: 2016Q4

REPORT INFORMATION
  Report Type: Spontaneous
  Country: CA (occurrence: US)
  Receive Date: 20161218
  Receipt Date: 20161218
  Transmission Date: 20170207
  Serious: Yes (Disabling)
  Sender: FDA-Public Use
  Company Number: None

PATIENT
  Age: 56 Year
  Sex: Male
  Weight: 83 kg

DRUGS (10)
  1. VIRGIN OLIVE OIL [Concomitant]
  2. ALPHA LIPOIC ACID [Concomitant]
     Active Substance: .ALPHA.-LIPOIC ACID
  3. METFORMINE [Concomitant]
     Active Substance: METFORMIN HYDROCHLORIDE
  4. CA/MG VITAMIN D3 [Concomitant]
  5. APO-FENO-SUPER [Suspect]
     Active Substance: FENOFIBRATE
     Indication: BLOOD TRIGLYCERIDES INCREASED
     Route: 048
     Dates: start: 20050330, end: 20051015
  6. PANTETHINE [Concomitant]
     Active Substance: PANTETHINE
  7. FENOFIBRATE. [Concomitant]
     Active Substance: FENOFIBRATE
  8. DICLOFENAC [Concomitant]
     Active Substance: DICLOFENAC
  9. LOPID [Suspect]
     Active Substance: GEMFIBROZIL
     Indication: DYSLIPIDAEMIA
     Route: 048
     Dates: start: 19961207, end: 20051203
  10. ASPIRIN. [Concomitant]
     Active Substance: ASPIRIN

REACTIONS (6)
  - Lipase increased [None]
  - Arthritis [None]
  - Pancreatic enzymes increased [None]
  - Myalgia [None]
  - Blood creatine phosphokinase increased [None]
  - Drug effect decreased [None]

NARRATIVE: CASE EVENT DATE: 20050330
